FAERS Safety Report 8731775 (Version 2)
Quarter: 2012Q4

REPORT INFORMATION
  Report Type: 
  Country: US (occurrence: US)
  Receive Date: 20120820
  Receipt Date: 20120920
  Transmission Date: 20130627
  Serious: Yes (Other)
  Sender: FDA-Public Use
  Company Number: US-JNJFOC-20120805110

PATIENT
  Age: 60 Year
  Sex: Female
  Weight: 64.41 kg

DRUGS (6)
  1. LISTERINE SMART RINSE PHINEAS AND FERB BUBBLE BLAST [Suspect]
     Indication: DENTAL DISORDER PROPHYLAXIS
     Route: 048
     Dates: start: 201207, end: 201207
  2. LISTERINE SMART RINSE PHINEAS AND FERB BUBBLE BLAST [Suspect]
     Indication: DENTAL DISORDER PROPHYLAXIS
     Dosage: as indicated on product
     Route: 048
     Dates: start: 2011
  3. ALBUTEROL [Concomitant]
     Indication: ASTHMA
     Dosage: as needed
     Route: 065
     Dates: start: 20120107, end: 20120817
  4. SINGULAIR [Concomitant]
     Indication: ASTHMA
     Dosage: daily
     Route: 065
     Dates: start: 2002
  5. DULERA [Concomitant]
     Indication: ASTHMA
     Dosage: as needed
     Route: 065
  6. AZELASTINE [Concomitant]
     Indication: MULTIPLE ALLERGIES
     Route: 065
     Dates: start: 2010

REACTIONS (2)
  - Asthma [Recovered/Resolved]
  - Product taste abnormal [Recovered/Resolved]
